FAERS Safety Report 4297084-0 (Version None)
Quarter: 2004Q1

REPORT INFORMATION
  Report Type: 
  Country: None (occurrence: None)
  Receive Date: 20040213
  Receipt Date: 20040205
  Transmission Date: 20041129
  Serious: Yes (Hospitalization)
  Sender: FDA-Public Use
  Company Number: US-SHR-03-008372

PATIENT
  Age: 61 Year
  Sex: Male
  Weight: 103.4 kg

DRUGS (9)
  1. FLUDARA [Suspect]
     Indication: CHRONIC LYMPHOCYTIC LEUKAEMIA
     Dosage: SEE IMAGE
     Route: 042
     Dates: start: 20000606, end: 20010111
  2. FLUDARA [Suspect]
     Indication: CHRONIC LYMPHOCYTIC LEUKAEMIA
     Dosage: SEE IMAGE
     Route: 042
     Dates: start: 20020128, end: 20020719
  3. TRICOR [Concomitant]
  4. PRAVACHOL [Concomitant]
  5. GLUCOTROL [Concomitant]
  6. GLUCOPHAGE ^ABIC^ (METFORMIN HYDROCHLORIDE) [Concomitant]
  7. NEURONTIN [Concomitant]
  8. AVALIDE [Concomitant]
  9. ZOLOFT [Concomitant]

REACTIONS (4)
  - ANAEMIA [None]
  - MYELODYSPLASTIC SYNDROME [None]
  - PANCYTOPENIA [None]
  - RENAL FAILURE [None]
